FAERS Safety Report 9839426 (Version 2)
Quarter: 2014Q1

REPORT INFORMATION
  Report Type: Report from Study
  Country: JP (occurrence: JP)
  Receive Date: 20140123
  Receipt Date: 20140312
  Transmission Date: 20141002
  Serious: Yes (Death)
  Sender: FDA-Public Use
  Company Number: JP-ROCHE-1336456

PATIENT
  Age: 74 Year
  Sex: Male
  Weight: 58 kg

DRUGS (12)
  1. METHOXY POLYETHYLENE GLYCOL-EPOETIN BETA [Suspect]
     Indication: NEPHROGENIC ANAEMIA
     Route: 058
     Dates: start: 20120517, end: 20120919
  2. BUFFERIN (JAPAN) [Concomitant]
     Route: 048
     Dates: end: 20120929
  3. TANATRIL [Concomitant]
     Route: 048
     Dates: end: 20120929
  4. GASTER D [Concomitant]
     Route: 048
     Dates: end: 20120929
  5. ADALAT CR [Concomitant]
     Route: 048
     Dates: end: 20120929
  6. ARTIST [Concomitant]
     Route: 048
     Dates: end: 20120929
  7. BERBERINE/GERANIUM [Concomitant]
     Route: 048
     Dates: end: 20120929
  8. CARDENALIN [Concomitant]
     Route: 048
     Dates: end: 20120929
  9. CRESTOR [Concomitant]
     Route: 048
     Dates: end: 20120929
  10. VESICARE [Concomitant]
     Route: 048
     Dates: end: 20120929
  11. ALFAROL [Concomitant]
     Route: 048
     Dates: end: 20120929
  12. KREMEZIN [Concomitant]
     Indication: NEPHROSCLEROSIS
     Route: 048
     Dates: start: 20120419, end: 20120929

REACTIONS (2)
  - Sudden death [Fatal]
  - Chest pain [Unknown]
